FAERS Safety Report 21712037 (Version 1)
Quarter: 2022Q4

REPORT INFORMATION
  Report Type: Spontaneous
  Country: CN (occurrence: CN)
  Receive Date: 20221212
  Receipt Date: 20221212
  Transmission Date: 20230113
  Serious: Yes (Hospitalization, Other)
  Sender: FDA-Public Use
  Company Number: CN-AMGEN-CHNSP2022210731

PATIENT
  Age: 88 Year
  Sex: Male
  Weight: 56 kg

DRUGS (4)
  1. XGEVA [Suspect]
     Active Substance: DENOSUMAB
     Indication: Diffuse large B-cell lymphoma
     Dosage: 120 MILLIGRAM
     Route: 058
     Dates: start: 20221104, end: 20221104
  2. DEXAMETHASONE SODIUM PHOSPHATE [Suspect]
     Active Substance: DEXAMETHASONE SODIUM PHOSPHATE
     Indication: Diffuse large B-cell lymphoma
     Dosage: 5 MILLIGRAM
     Route: 040
     Dates: start: 20221027, end: 20221027
  3. BORTEZOMIB [Suspect]
     Active Substance: BORTEZOMIB
     Indication: Diffuse large B-cell lymphoma
     Dosage: 2 MILLIGRAM
     Route: 058
     Dates: start: 20221027, end: 20221027
  4. SODIUM CHLORIDE [Concomitant]
     Active Substance: SODIUM CHLORIDE
     Indication: Diffuse large B-cell lymphoma
     Dosage: 2 MILLIGRAM
     Route: 058
     Dates: start: 20221027, end: 20221027

REACTIONS (2)
  - Myelosuppression [Recovering/Resolving]
  - White blood cell count decreased [Recovering/Resolving]

NARRATIVE: CASE EVENT DATE: 20221127
